FAERS Safety Report 7532612-0 (Version None)
Quarter: 2011Q2

REPORT INFORMATION
  Report Type: 
  Country: None (occurrence: None)
  Receive Date: 20110608
  Receipt Date: 20110603
  Transmission Date: 20111010
  Serious: Yes (Death, Hospitalization, Other)
  Sender: FDA-Public Use
  Company Number: PHHY2011BR48728

PATIENT
  Sex: Female
  Weight: 60 kg

DRUGS (1)
  1. DIOVAN [Suspect]
     Indication: HYPERTENSION
     Dosage: 1 DF, (1 TABLET A DAY IN A FRIDAY, SATURDAY, SUNDAY AND MONDAY )
     Route: 048

REACTIONS (3)
  - CONVULSION [None]
  - DEATH [None]
  - HYPERTENSION [None]
